FAERS Safety Report 24443714 (Version 2)
Quarter: 2024Q4

REPORT INFORMATION
  Report Type: Report from Study
  Country: CA (occurrence: CA)
  Receive Date: 20241016
  Receipt Date: 20241017
  Transmission Date: 20250114
  Serious: No
  Sender: ROCHE
  Company Number: CA-ROCHE-1884973

PATIENT
  Age: 27 Year
  Sex: Female
  Weight: 77.0 kg

DRUGS (29)
  1. RITUXAN [Suspect]
     Active Substance: RITUXIMAB
     Indication: Immunoglobulin G4 related disease
     Route: 042
     Dates: start: 20160617
  2. TYLENOL [Concomitant]
     Active Substance: ACETAMINOPHEN
     Route: 048
     Dates: start: 20160617
  3. BENADRYL [Concomitant]
     Active Substance: DIPHENHYDRAMINE HYDROCHLORIDE
     Route: 048
     Dates: start: 20160617
  4. METHYLPREDNISOLONE [Concomitant]
     Active Substance: METHYLPREDNISOLONE
     Route: 048
     Dates: start: 20160617
  5. METRONIDAZOLE [Concomitant]
     Active Substance: METRONIDAZOLE
  6. VALSARTAN [Concomitant]
     Active Substance: VALSARTAN
  7. LORAZEPAM [Concomitant]
     Active Substance: LORAZEPAM
  8. ERYTHROMYCIN [Concomitant]
     Active Substance: ERYTHROMYCIN
  9. FUROSEMIDE [Concomitant]
     Active Substance: FUROSEMIDE
  10. COLACE [Concomitant]
     Active Substance: DOCUSATE SODIUM
  11. BISACODYL [Concomitant]
     Active Substance: BISACODYL
  12. ATORVASTATIN [Concomitant]
     Active Substance: ATORVASTATIN
  13. ONDANSETRON [Concomitant]
     Active Substance: ONDANSETRON
  14. SPIRONOLACTONE [Concomitant]
     Active Substance: SPIRONOLACTONE
  15. DIMENHYDRINATE [Concomitant]
     Active Substance: DIMENHYDRINATE
  16. ACYCLOVIR [Concomitant]
     Active Substance: ACYCLOVIR
  17. ACETAMINOPHEN [Concomitant]
     Active Substance: ACETAMINOPHEN
  18. LEVOFLOXACIN [Concomitant]
     Active Substance: LEVOFLOXACIN
  19. NALOXONE [Concomitant]
     Active Substance: NALOXONE
     Dosage: FREQUENCY TEXT:PRN,
  20. MOMETASONE [Concomitant]
     Active Substance: MOMETASONE
  21. ALBUTEROL [Concomitant]
     Active Substance: ALBUTEROL
  22. CARBOXYMETHYLCELLULOSE [Concomitant]
     Active Substance: CARBOXYMETHYLCELLULOSE
  23. ADVAIR HFA [Concomitant]
     Active Substance: FLUTICASONE PROPIONATE\SALMETEROL XINAFOATE
  24. SYSTANE (HYPROMELLOSE 2910 (4000 MPA.S)) [Concomitant]
     Active Substance: HYPROMELLOSE 2910 (4000 MPA.S)
  25. PREDNISONE [Concomitant]
     Active Substance: PREDNISONE
  26. PANTOPRAZOLE [Concomitant]
     Active Substance: PANTOPRAZOLE
  27. ESTRADIOL [Concomitant]
     Active Substance: ESTRADIOL
  28. LACTULOSE [Concomitant]
     Active Substance: LACTULOSE
  29. ALTEPLASE [Concomitant]
     Active Substance: ALTEPLASE
     Dosage: FREQUENCY TEXT:PRN

REACTIONS (2)
  - Nausea [Recovered/Resolved]
  - Nausea [Recovered/Resolved]

NARRATIVE: CASE EVENT DATE: 20170110
